FAERS Safety Report 25437349 (Version 5)
Quarter: 2025Q4

REPORT INFORMATION
  Report Type: Spontaneous
  Country: JP (occurrence: JP)
  Receive Date: 20250616
  Receipt Date: 20251204
  Transmission Date: 20260117
  Serious: Yes (Hospitalization, Other)
  Sender: GALDERMA
  Company Number: JP-GALDERMA-JP2025009551

PATIENT

DRUGS (28)
  1. NEMOLIZUMAB [Suspect]
     Active Substance: NEMOLIZUMAB
     Indication: Neurodermatitis
     Dosage: 60 MILLIGRAM/4 WEEKS
     Route: 058
     Dates: start: 20240723, end: 20240723
  2. NEMOLIZUMAB [Suspect]
     Active Substance: NEMOLIZUMAB
     Indication: Dermatitis atopic
     Dosage: 30 MILLIGRAM/4 WEEKS
     Route: 058
     Dates: start: 20240820, end: 20240820
  3. NEMOLIZUMAB [Suspect]
     Active Substance: NEMOLIZUMAB
     Dosage: 30 MILLIGRAM/4 WEEKS
     Route: 058
     Dates: start: 20240924, end: 20240924
  4. NEMOLIZUMAB [Suspect]
     Active Substance: NEMOLIZUMAB
     Dosage: 30 MILLIGRAM/4 WEEKS
     Route: 058
     Dates: start: 20241022, end: 20241022
  5. NEMOLIZUMAB [Suspect]
     Active Substance: NEMOLIZUMAB
     Dosage: 30 MILLIGRAM/4 WEEKS
     Route: 058
     Dates: start: 20241119, end: 20241119
  6. NEMOLIZUMAB [Suspect]
     Active Substance: NEMOLIZUMAB
     Dosage: 30 MILLIGRAM/4 WEEKS
     Route: 058
     Dates: start: 20241217, end: 20241217
  7. NEMOLIZUMAB [Suspect]
     Active Substance: NEMOLIZUMAB
     Dosage: 30 MILLIGRAM/4 WEEKS
     Route: 058
     Dates: start: 20250116, end: 20250116
  8. NEMOLIZUMAB [Suspect]
     Active Substance: NEMOLIZUMAB
     Dosage: 30 MILLIGRAM/4 WEEKS
     Route: 058
     Dates: start: 20250218, end: 20250218
  9. NEMOLIZUMAB [Suspect]
     Active Substance: NEMOLIZUMAB
     Dosage: 30 MILLIGRAM/4 WEEKS
     Route: 058
     Dates: start: 20250318, end: 20250318
  10. NEMOLIZUMAB [Suspect]
     Active Substance: NEMOLIZUMAB
     Dosage: 30 MILLIGRAM/4 WEEKS
     Route: 058
     Dates: start: 20250616, end: 20250616
  11. PREDNISOLONE [Concomitant]
     Active Substance: PREDNISOLONE
     Indication: Neurodermatitis
     Dosage: 15 MILLIGRAM
     Route: 048
     Dates: start: 20240521, end: 20240527
  12. PREDNISOLONE [Concomitant]
     Active Substance: PREDNISOLONE
     Indication: Dermatitis atopic
     Dosage: 12.5 MILLIGRAM
     Route: 048
     Dates: start: 20240528, end: 20240603
  13. PREDNISOLONE [Concomitant]
     Active Substance: PREDNISOLONE
     Dosage: 10 MILLIGRAM
     Route: 048
     Dates: start: 20240604, end: 20240610
  14. PREDNISOLONE [Concomitant]
     Active Substance: PREDNISOLONE
     Dosage: 7.5 MILLIGRAM
     Route: 048
     Dates: start: 20240611, end: 20240623
  15. PREDNISOLONE [Concomitant]
     Active Substance: PREDNISOLONE
     Dosage: 5 MILLIGRAM
     Route: 048
     Dates: start: 20240624, end: 20240722
  16. PREDNISOLONE [Concomitant]
     Active Substance: PREDNISOLONE
     Dosage: 4 MILLIGRAM
     Route: 048
     Dates: start: 20240730, end: 20240826
  17. PREDNISOLONE [Concomitant]
     Active Substance: PREDNISOLONE
     Dosage: 3 MILLIGRAM
     Route: 048
     Dates: start: 20240827, end: 20250406
  18. METHYLCOBALAMIN [Concomitant]
     Active Substance: METHYLCOBALAMIN
     Indication: Product used for unknown indication
     Dosage: 1.5 MILLIGRAM
     Route: 048
  19. REBAMIPIDE [Concomitant]
     Active Substance: REBAMIPIDE
     Indication: Product used for unknown indication
     Dosage: 300 MILLIGRAMS
     Route: 048
  20. NIFEDIPINE [Concomitant]
     Active Substance: NIFEDIPINE
     Indication: Product used for unknown indication
     Dosage: 20 MILLIGRAMS
     Route: 048
  21. AZOSEMIDE [Concomitant]
     Active Substance: AZOSEMIDE
     Indication: Product used for unknown indication
     Dosage: 15 MILLIGRAMS
     Route: 048
  22. SPIRONOLACTONE [Concomitant]
     Active Substance: SPIRONOLACTONE
     Indication: Product used for unknown indication
     Dosage: 12.5 MILLIGRAMS
     Route: 048
  23. VONOPRAZAN FUMARATE [Concomitant]
     Active Substance: VONOPRAZAN FUMARATE
     Indication: Product used for unknown indication
     Dosage: 10 MILLIGRAMS
     Route: 048
  24. DESLORATADINE [Concomitant]
     Active Substance: DESLORATADINE
     Indication: Eczema asteatotic
     Route: 048
  25. TACROLIMUS [Concomitant]
     Active Substance: TACROLIMUS
     Indication: Skin irritation
  26. Heparinoid [Concomitant]
     Indication: Skin irritation
     Route: 061
  27. MIROGABALIN BESYLATE [Concomitant]
     Active Substance: MIROGABALIN BESYLATE
     Indication: Product used for unknown indication
     Dosage: UNK
     Route: 048
     Dates: end: 20250218
  28. ACETAMINOPHEN\TRAMADOL HYDROCHLORIDE [Concomitant]
     Active Substance: ACETAMINOPHEN\TRAMADOL HYDROCHLORIDE
     Indication: Product used for unknown indication

REACTIONS (5)
  - Herpes zoster [Recovering/Resolving]
  - Hepatitis B reactivation [Recovering/Resolving]
  - Renal impairment [Recovering/Resolving]
  - Liver disorder [Recovering/Resolving]
  - Prurigo [Unknown]

NARRATIVE: CASE EVENT DATE: 20241201
